FAERS Safety Report 16048036 (Version 1)
Quarter: 2019Q1

REPORT INFORMATION
  Report Type: Spontaneous
  Country: GB (occurrence: GB)
  Receive Date: 20190307
  Receipt Date: 20190307
  Transmission Date: 20190418
  Serious: Yes (Other)
  Sender: FDA-Public Use
  Company Number: GB-TEVA-2019-GB-1019156

PATIENT
  Sex: Male

DRUGS (2)
  1. MORPHINE [Suspect]
     Active Substance: MORPHINE
     Route: 048
  2. MORPHINE [Suspect]
     Active Substance: MORPHINE
     Dosage: WEANED OFF OF WITHIN 13 HOURS.

REACTIONS (4)
  - Grunting [Unknown]
  - Tachycardia [Unknown]
  - Tachypnoea [Unknown]
  - Drug withdrawal syndrome [Unknown]

NARRATIVE: CASE EVENT DATE: 20181102
